FAERS Safety Report 15997889 (Version 3)
Quarter: 2019Q1

REPORT INFORMATION
  Report Type: Spontaneous
  Country: DE (occurrence: DE)
  Receive Date: 20190222
  Receipt Date: 20190315
  Transmission Date: 20190418
  Serious: Yes (Hospitalization)
  Sender: FDA-Public Use
  Company Number: DE-ASCEND THERAPEUTICS-2063094

PATIENT
  Age: 37 Year
  Sex: Female

DRUGS (2)
  1. PROGESTAN (PROGESTERONE) [Concomitant]
     Active Substance: PROGESTERONE
     Dates: start: 201902
  2. ESTROGEL [Suspect]
     Active Substance: ESTRADIOL
     Indication: HORMONE REPLACEMENT THERAPY
     Route: 062
     Dates: start: 201809

REACTIONS (1)
  - Depression [Not Recovered/Not Resolved]
